FAERS Safety Report 5142969-6 (Version None)
Quarter: 2006Q4

REPORT INFORMATION
  Report Type: 
  Country: None (occurrence: None)
  Receive Date: 20061103
  Receipt Date: 20051227
  Transmission Date: 20070319
  Serious: Yes (Hospitalization)
  Sender: FDA-Public Use
  Company Number: DE-BAYER-200511231BVD

PATIENT
  Age: 71 Year
  Sex: Male
  Weight: 71 kg

DRUGS (19)
  1. SORAFENIB [Suspect]
     Indication: METASTATIC RENAL CELL CARCINOMA
     Dosage: AS USED: 400 MG
     Route: 048
     Dates: start: 20041213, end: 20050127
  2. SORAFENIB [Suspect]
     Dosage: TOTAL DAILY DOSE: 800 MG
     Route: 048
     Dates: start: 20050127, end: 20050314
  3. SORAFENIB [Suspect]
     Dosage: TOTAL DAILY DOSE: 800 MG
     Route: 048
     Dates: start: 20050314, end: 20050422
  4. SORAFENIB [Suspect]
     Dosage: TOTAL DAILY DOSE: 800 MG
     Route: 048
     Dates: start: 20050606, end: 20050808
  5. SORAFENIB [Suspect]
     Dosage: TOTAL DAILY DOSE: 800 MG
     Route: 048
     Dates: start: 20050808, end: 20051013
  6. SORAFENIB [Suspect]
     Dosage: TOTAL DAILY DOSE: 800 MG
     Route: 048
     Dates: start: 20050422, end: 20050606
  7. SORAFENIB [Suspect]
     Dosage: AS USED: 400 MG
     Route: 048
     Dates: start: 20060103, end: 20060107
  8. SORAFENIB [Suspect]
     Route: 048
     Dates: start: 20051031, end: 20051219
  9. CONCOR [Concomitant]
     Route: 048
     Dates: start: 19940101
  10. AMILORID COMP. [Concomitant]
     Route: 048
     Dates: start: 19940101, end: 20060126
  11. ACETAMINOPHEN [Concomitant]
     Route: 048
     Dates: start: 20030101, end: 20060126
  12. ALLOPURINOL [Concomitant]
     Route: 048
     Dates: start: 20040503, end: 20060126
  13. OMEBETA [Concomitant]
     Route: 048
     Dates: start: 20030101, end: 20060126
  14. AMINEURIN [Concomitant]
     Route: 048
     Dates: start: 20030101, end: 20060126
  15. DUSODRIL [Concomitant]
     Route: 048
     Dates: start: 20050307
  16. ISOCOR [Concomitant]
     Indication: MYOCARDIAL INFARCTION
     Route: 048
     Dates: start: 20051004
  17. CORANGIN [Concomitant]
     Indication: MYOCARDIAL INFARCTION
     Route: 048
     Dates: start: 20051004, end: 20060126
  18. CORVATON RETARD [Concomitant]
     Indication: MYOCARDIAL INFARCTION
     Route: 048
     Dates: start: 20051004, end: 20060126
  19. TAVOR [Concomitant]
     Indication: DEPRESSION
     Route: 048
     Dates: start: 20051004, end: 20060126

REACTIONS (3)
  - ANOREXIA [None]
  - GENERAL PHYSICAL HEALTH DETERIORATION [None]
  - WEIGHT DECREASED [None]
